FAERS Safety Report 6621903-3 (Version None)
Quarter: 2010Q1

REPORT INFORMATION
  Report Type: 
  Country: None (occurrence: None)
  Receive Date: 20100309
  Receipt Date: 20100305
  Transmission Date: 20100710
  Serious: Yes (Hospitalization)
  Sender: FDA-Public Use
  Company Number: CA-MERCK-1002CAN00012

PATIENT
  Age: 43 Year
  Sex: Male

DRUGS (4)
  1. JANUVIA [Suspect]
     Indication: TYPE 2 DIABETES MELLITUS
     Route: 048
     Dates: start: 20100105, end: 20100110
  2. DIAMICRON [Suspect]
     Indication: TYPE 2 DIABETES MELLITUS
     Route: 048
     Dates: start: 20100105, end: 20100110
  3. METFORMIN [Concomitant]
     Route: 065
     Dates: start: 20091228, end: 20100101
  4. METFORMIN [Concomitant]
     Route: 048
     Dates: start: 20100101

REACTIONS (1)
  - ILEUS [None]
